FAERS Safety Report 6557834-7 (Version None)
Quarter: 2010Q1

REPORT INFORMATION
  Report Type: 
  Country: None (occurrence: None)
  Receive Date: 20100128
  Receipt Date: 20100128
  Transmission Date: 20100710
  Serious: Yes (Hospitalization)
  Sender: FDA-Public Use
  Company Number: None

PATIENT
  Age: 84 Year
  Sex: Female
  Weight: 64.8644 kg

DRUGS (1)
  1. REVLIMID [Suspect]
     Indication: 5Q MINUS SYNDROME
     Dosage: 10 MG QD PO
     Route: 048
     Dates: start: 20091223, end: 20100114

REACTIONS (3)
  - BLOOD COUNT ABNORMAL [None]
  - FEBRILE NEUTROPENIA [None]
  - INFECTION [None]
